FAERS Safety Report 6289426-1 (Version None)
Quarter: 2009Q3

REPORT INFORMATION
  Report Type: 
  Country: None (occurrence: None)
  Receive Date: 20090730
  Receipt Date: 20090728
  Transmission Date: 20100115
  Serious: Yes (Hospitalization)
  Sender: FDA-Public Use
  Company Number: JP-BRISTOL-MYERS SQUIBB COMPANY-14682850

PATIENT
  Age: 50 Year
  Sex: Female
  Weight: 40 kg

DRUGS (7)
  1. PARAPLATIN [Suspect]
     Indication: NEUROENDOCRINE CARCINOMA
     Dosage: THERAPY DURN-ONCE.
     Route: 042
     Dates: start: 20090623, end: 20090623
  2. LASTET [Suspect]
     Indication: NEUROENDOCRINE CARCINOMA
     Dosage: FORM-INJ.
     Route: 042
     Dates: start: 20090623, end: 20090623
  3. POLAPREZINC [Concomitant]
     Indication: PROPHYLAXIS
     Dosage: FORM = GRA
     Route: 048
     Dates: start: 20090404
  4. SENNOSIDE A+B [Concomitant]
     Indication: CONSTIPATION
     Dosage: FORM = GRA
     Route: 048
     Dates: start: 20090427
  5. WARFARIN POTASSIUM [Concomitant]
     Indication: DEEP VEIN THROMBOSIS
     Dosage: FORM = TAB
     Route: 048
     Dates: start: 20090404
  6. DAI-KENCHU-TO [Concomitant]
     Indication: ABDOMINAL DISTENSION
     Dosage: FORM = GRA
     Route: 048
     Dates: start: 20090416
  7. FERROUS CITRATE [Concomitant]
     Indication: ANAEMIA
     Dosage: FORM = TAB
     Route: 048
     Dates: start: 20090404

REACTIONS (1)
  - ENCEPHALOPATHY [None]
